FAERS Safety Report 13211623 (Version 1)
Quarter: 2017Q1

REPORT INFORMATION
  Report Type: Spontaneous
  Country: US (occurrence: US)
  Receive Date: 20170210
  Receipt Date: 20170210
  Transmission Date: 20170428
  Serious: Yes (Hospitalization, Other)
  Sender: FDA-Public Use
  Company Number: US-BAYER-2017-018718

PATIENT
  Age: 27 Year
  Sex: Female
  Weight: 58.97 kg

DRUGS (1)
  1. MIRENA [Suspect]
     Active Substance: LEVONORGESTREL
     Indication: CONTRACEPTION
     Dosage: 20 MCG/24HR, CONT
     Route: 015
     Dates: start: 20151231, end: 20160919

REACTIONS (8)
  - Bacterial vaginosis [Recovered/Resolved]
  - Complication of device removal [Recovered/Resolved with Sequelae]
  - Seizure [Not Recovered/Not Resolved]
  - Anxiety [Not Recovered/Not Resolved]
  - Appendicitis [Recovered/Resolved]
  - Deafness [Not Recovered/Not Resolved]
  - Abdominal pain [Recovered/Resolved]
  - Migraine [None]

NARRATIVE: CASE EVENT DATE: 20160630
